FAERS Safety Report 15366964 (Version 1)
Quarter: 2018Q3

REPORT INFORMATION
  Report Type: Spontaneous
  Country: JP (occurrence: JP)
  Receive Date: 20180910
  Receipt Date: 20180910
  Transmission Date: 20181010
  Serious: Yes (Hospitalization, Other)
  Sender: FDA-Public Use
  Company Number: JP-PFIZER INC-2018357192

PATIENT
  Age: 73 Year
  Sex: Male

DRUGS (4)
  1. SUTENT [Suspect]
     Active Substance: SUNITINIB MALATE
     Dosage: 37.5 MG, DAILY (ADMINISTERED FOR 4?WEEK AND WITHDRAWAL FOR 2?WEEK)
     Route: 048
     Dates: start: 201309
  2. SUTENT [Suspect]
     Active Substance: SUNITINIB MALATE
     Dosage: 25 MG, DAILY(ADMINISTERED FOR 1?WEEK  AND WITHDRAWAL FOR 1?WEEK)
     Route: 048
     Dates: start: 201703, end: 201704
  3. SUTENT [Suspect]
     Active Substance: SUNITINIB MALATE
     Dosage: 25 MG, DAILY(ADMINISTERED FOR 2?WEEK AND WITHDRAWAL FOR 1?WEEK )
     Route: 048
     Dates: start: 201707, end: 201803
  4. SUTENT [Suspect]
     Active Substance: SUNITINIB MALATE
     Dosage: 25 MG, DAILY(ADMINISTERED FOR 2?WEEK AND WITHDRAWAL FOR 1?WEEK )
     Route: 048
     Dates: start: 201701

REACTIONS (2)
  - Blood creatinine increased [Unknown]
  - Gastric ulcer haemorrhage [Unknown]

NARRATIVE: CASE EVENT DATE: 201704
